FAERS Safety Report 10542152 (Version 2)
Quarter: 2014Q4

REPORT INFORMATION
  Report Type: Report from Study
  Country: CO (occurrence: CO)
  Receive Date: 20141024
  Receipt Date: 20141024
  Transmission Date: 20150529
  Serious: Yes (Hospitalization)
  Sender: FDA-Public Use
  Company Number: CO-009507513-1005USA00885

PATIENT
  Age: 72 Year
  Sex: Male
  Weight: 65.3 kg

DRUGS (13)
  1. DIPIRONE [Concomitant]
     Active Substance: METAMIZOLE SODIUM
     Dosage: 1 G, Q6H
     Route: 041
     Dates: start: 20100326, end: 20100327
  2. FERROUS SULFATE [Concomitant]
     Active Substance: FERROUS SULFATE\FERROUS SULFATE, DRIED
     Dosage: 300 MG, QD
     Route: 048
     Dates: start: 20091001
  3. HYDROCHLOROTHIAZIDE. [Concomitant]
     Active Substance: HYDROCHLOROTHIAZIDE
     Dosage: 25 MG, QD
     Route: 048
     Dates: start: 20070301, end: 20100217
  4. CLOPIDOGREL BISULFATE. [Concomitant]
     Active Substance: CLOPIDOGREL BISULFATE
     Dosage: 75 MG, QD
     Route: 048
     Dates: start: 20100130
  5. METOPROLOL [Concomitant]
     Active Substance: METOPROLOL
     Dosage: 100 MG, QD
     Route: 048
     Dates: start: 20070301
  6. ASPIRIN. [Concomitant]
     Active Substance: ASPIRIN
     Dosage: 100 MG, QD
     Route: 048
     Dates: start: 20100301
  7. LEVOTHYROXINE SODIUM. [Concomitant]
     Active Substance: LEVOTHYROXINE SODIUM
     Dosage: 50 ?G, QD
     Route: 048
     Dates: start: 20070301
  8. OMEPRAZOLE. [Concomitant]
     Active Substance: OMEPRAZOLE
     Dosage: 20 MG, QD
     Route: 048
     Dates: start: 20070301
  9. MK-0745 [Concomitant]
     Dosage: 10 MG, BID
     Route: 041
     Dates: start: 20100326, end: 20100408
  10. VASOTEC [Concomitant]
     Active Substance: ENALAPRIL MALEATE
     Dosage: 40 MG, QD
     Route: 048
     Dates: start: 20070301, end: 20100217
  11. TRAMADOL HYDROCHLORIDE. [Concomitant]
     Active Substance: TRAMADOL HYDROCHLORIDE
     Dosage: 50 MG, TID
     Route: 041
     Dates: start: 20100327, end: 20100404
  12. SIMVASTATIN. [Suspect]
     Active Substance: SIMVASTATIN
     Indication: ACUTE CORONARY SYNDROME
     Route: 048
     Dates: start: 20100204
  13. MK-0242 [Concomitant]
     Dosage: 50 MG, TID
     Route: 041
     Dates: start: 20100327, end: 20100408

REACTIONS (3)
  - Cholecystitis [Recovered/Resolved]
  - Bile duct stone [Recovered/Resolved]
  - Pancreatitis [Recovered/Resolved]

NARRATIVE: CASE EVENT DATE: 20100321
